FAERS Safety Report 16074682 (Version 1)
Quarter: 2019Q1

REPORT INFORMATION
  Report Type: Spontaneous
  Country: NO (occurrence: NO)
  Receive Date: 20190314
  Receipt Date: 20190314
  Transmission Date: 20190418
  Serious: Yes (Life-Threatening)
  Sender: FDA-Public Use
  Company Number: NO-BIODELIVERY SCIENCES INTERNATIONAL-2018BDSI0018

PATIENT
  Age: 26 Year
  Sex: Female

DRUGS (15)
  1. EFEDRIN [Concomitant]
     Active Substance: EPHEDRINE
     Indication: PRODUCT USED FOR UNKNOWN INDICATION
     Dates: start: 20170906, end: 20170906
  2. INDOCYANINE GREEN. [Concomitant]
     Active Substance: INDOCYANINE GREEN
     Indication: PRODUCT USED FOR UNKNOWN INDICATION
     Dates: start: 20170906, end: 20170906
  3. BUPIVACAINE. [Concomitant]
     Active Substance: BUPIVACAINE
     Indication: PRODUCT USED FOR UNKNOWN INDICATION
     Dates: start: 20170906, end: 20170906
  4. RINGER-ACETAT [Concomitant]
     Dates: start: 20170906, end: 20170906
  5. DESFLURANE. [Concomitant]
     Active Substance: DESFLURANE
     Indication: PRODUCT USED FOR UNKNOWN INDICATION
     Dates: start: 20170906, end: 20170906
  6. FENTANYL. [Suspect]
     Active Substance: FENTANYL
     Indication: ANAESTHESIA PROCEDURE
     Route: 065
     Dates: start: 20170906, end: 20170906
  7. REMIFENTANIL [Suspect]
     Active Substance: REMIFENTANIL
     Indication: ANAESTHESIA PROCEDURE
     Dates: start: 20170906, end: 20170906
  8. DOXYCYCLINE. [Concomitant]
     Active Substance: DOXYCYCLINE
     Indication: PRODUCT USED FOR UNKNOWN INDICATION
     Dates: start: 20170906, end: 20170906
  9. ONDANSETRON [Concomitant]
     Active Substance: ONDANSETRON
     Indication: PRODUCT USED FOR UNKNOWN INDICATION
     Dates: start: 20170906, end: 20170906
  10. ROBINUL-NEOSTIGMIN [Concomitant]
     Indication: PRODUCT USED FOR UNKNOWN INDICATION
     Dates: start: 20170906, end: 20170906
  11. ROCURONIUM BROMIDE. [Concomitant]
     Active Substance: ROCURONIUM BROMIDE
     Indication: PRODUCT USED FOR UNKNOWN INDICATION
     Dates: start: 20170906, end: 20170906
  12. PROPOFOL. [Suspect]
     Active Substance: PROPOFOL
     Indication: ANAESTHESIA PROCEDURE
     Dates: start: 20170906, end: 20170906
  13. PARACETAMOL [Suspect]
     Active Substance: ACETAMINOPHEN
     Indication: PAIN
     Dates: start: 20170906, end: 20170906
  14. RINGER-ACETAT [Concomitant]
     Indication: PRODUCT USED FOR UNKNOWN INDICATION
  15. ALFENTANIL. [Suspect]
     Active Substance: ALFENTANIL
     Indication: ANAESTHESIA PROCEDURE
     Dates: start: 20170906, end: 20170906

REACTIONS (7)
  - Dyspnoea [Recovered/Resolved]
  - Tachycardia [Recovered/Resolved]
  - Urticaria [Recovered/Resolved]
  - Paraesthesia [Recovered/Resolved]
  - Swollen tongue [Recovered/Resolved]
  - Palpitations [Recovered/Resolved]
  - Abdominal pain [Recovered/Resolved]

NARRATIVE: CASE EVENT DATE: 20170906
